FAERS Safety Report 13899362 (Version 1)
Quarter: 2017Q3

REPORT INFORMATION
  Report Type: Spontaneous
  Country: GB (occurrence: GB)
  Receive Date: 20170824
  Receipt Date: 20170824
  Transmission Date: 20171127
  Serious: Yes (Life-Threatening, Hospitalization, Other)
  Sender: FDA-Public Use
  Company Number: GB-AUROBINDO-AUR-APL-2017-39183

PATIENT
  Age: 23 Year
  Sex: Female
  Weight: 63.5 kg

DRUGS (3)
  1. CERELLE [Concomitant]
     Active Substance: DESOGESTREL
     Indication: CONTRACEPTION
     Route: 065
  2. CARBAMAZEPIN [Suspect]
     Active Substance: CARBAMAZEPINE
     Indication: BORDERLINE PERSONALITY DISORDER
     Dosage: 150 MG, UNK
     Route: 048
     Dates: start: 20170701, end: 20170710
  3. LAMOTRIGINE. [Suspect]
     Active Substance: LAMOTRIGINE
     Indication: BORDERLINE PERSONALITY DISORDER
     Dosage: 150 MG, UNK
     Route: 048
     Dates: start: 20170607, end: 20170620

REACTIONS (10)
  - Hypersensitivity [Unknown]
  - Back pain [Unknown]
  - Photophobia [Unknown]
  - Rash [Unknown]
  - Neck pain [Unknown]
  - Headache [Unknown]
  - Eye pain [Unknown]
  - Confusional state [Unknown]
  - Pyrexia [Recovering/Resolving]
  - Pain in extremity [Unknown]
